FAERS Safety Report 7032755-4 (Version None)
Quarter: 2010Q4

REPORT INFORMATION
  Report Type: 
  Country: None (occurrence: None)
  Receive Date: 20101007
  Receipt Date: 20100930
  Transmission Date: 20110411
  Serious: No
  Sender: FDA-Public Use
  Company Number: US-PFIZER INC-2010124918

PATIENT
  Sex: Male

DRUGS (2)
  1. LIPITOR [Suspect]
  2. DILANTIN [Suspect]

REACTIONS (2)
  - RASH [None]
  - VITILIGO [None]
